FAERS Safety Report 9381914 (Version 1)
Quarter: 2013Q3

REPORT INFORMATION
  Report Type: Spontaneous
  Country: US (occurrence: US)
  Receive Date: 20130703
  Receipt Date: 20130703
  Transmission Date: 20140515
  Serious: Yes (Other)
  Sender: FDA-Public Use
  Company Number: US-PFIZER INC-2013196380

PATIENT
  Age: 50 Year
  Sex: Female
  Weight: 68.03 kg

DRUGS (3)
  1. LIPITOR [Suspect]
     Indication: BLOOD CHOLESTEROL INCREASED
     Dosage: 5 MG, 1X/DAY
     Route: 048
     Dates: start: 2010
  2. INSULIN [Concomitant]
     Indication: TYPE 1 DIABETES MELLITUS
     Dosage: UNK
  3. ATRIPLA [Concomitant]
     Indication: HIV TEST POSITIVE
     Dosage: UNK

REACTIONS (1)
  - Coeliac disease [Unknown]
